FAERS Safety Report 4393355-8 (Version None)
Quarter: 2004Q3

REPORT INFORMATION
  Report Type: 
  Country: None (occurrence: None)
  Receive Date: 20040709
  Receipt Date: 20040701
  Transmission Date: 20050211
  Serious: Yes (Other)
  Sender: FDA-Public Use
  Company Number: PHBS2004BR08848

PATIENT
  Age: 76 Year
  Sex: Male

DRUGS (9)
  1. STARLIX [Suspect]
     Indication: DIABETES MELLITUS
     Dosage: 3 OR 4 TABLETS DAILY
     Route: 048
  2. RIVOTRIL [Concomitant]
     Indication: BIPOLAR DISORDER
     Dosage: 1 TABLET/DAY
     Route: 048
  3. GLIPIZIDE [Concomitant]
     Indication: HYPERTENSION
     Dosage: 2 OR 3 TABLETS/DAY
     Route: 048
  4. ZOCOR [Concomitant]
     Indication: HYPERTENSION
     Dosage: 1 TABLETS/DAY
     Route: 048
  5. OXCORD [Concomitant]
     Indication: HYPERTENSION
     Dosage: 2 DF, QD
     Route: 048
  6. TRILEPTAL [Concomitant]
     Indication: BIPOLAR DISORDER
     Dosage: 3 DF, QD
     Route: 048
  7. AMPLICTIL [Concomitant]
     Indication: INSOMNIA
     Dosage: 2 DF, QD
     Route: 048
  8. CEMAP [Concomitant]
     Indication: DELIRIUM
     Dosage: 2 TABLET/DAY
     Route: 048
  9. DIAZEPAM [Concomitant]
     Indication: INSOMNIA
     Dosage: 10 MG/DAY

REACTIONS (5)
  - ANOREXIA [None]
  - BLOOD GLUCOSE FLUCTUATION [None]
  - CONFUSIONAL STATE [None]
  - DEPRESSED LEVEL OF CONSCIOUSNESS [None]
  - TREMOR [None]
